FAERS Safety Report 7964866-0 (Version None)
Quarter: 2011Q4

REPORT INFORMATION
  Report Type: 
  Country: None (occurrence: None)
  Receive Date: 20111208
  Receipt Date: 20111208
  Transmission Date: 20120403
  Serious: Yes (Hospitalization)
  Sender: FDA-Public Use
  Company Number: None

PATIENT
  Age: 69 Year
  Sex: Female
  Weight: 61 kg

DRUGS (1)
  1. PRADAXA [Suspect]
     Indication: ATRIAL FIBRILLATION
     Dosage: 150 MG
     Route: 048

REACTIONS (6)
  - GASTRITIS EROSIVE [None]
  - PULMONARY OEDEMA [None]
  - RECTAL ULCER [None]
  - CARDIAC FAILURE CONGESTIVE [None]
  - COLITIS ISCHAEMIC [None]
  - HAEMATOCHEZIA [None]
